FAERS Safety Report 20945516 (Version 1)
Quarter: 2022Q2

REPORT INFORMATION
  Report Type: Spontaneous
  Country: GR (occurrence: GR)
  Receive Date: 20220610
  Receipt Date: 20220610
  Transmission Date: 20220720
  Serious: Yes (Other)
  Sender: FDA-Public Use
  Company Number: GR-PFIZER INC-202200531228

PATIENT
  Age: 63 Year
  Sex: Male

DRUGS (1)
  1. INSPRA [Suspect]
     Active Substance: EPLERENONE
     Dosage: UNK

REACTIONS (2)
  - COVID-19 [Unknown]
  - Blood potassium increased [Unknown]
